FAERS Safety Report 14813352 (Version 1)
Quarter: 2018Q2

REPORT INFORMATION
  Report Type: Report from Study
  Country: None (occurrence: IT)
  Receive Date: 20180426
  Receipt Date: 20180426
  Transmission Date: 20180711
  Serious: Yes (Disabling)
  Sender: FDA-Public Use
  Company Number: IT-ABBVIE-18K-083-2330109-00

PATIENT
  Sex: Male

DRUGS (1)
  1. DUODOPA [Suspect]
     Active Substance: CARBIDOPA\LEVODOPA
     Indication: PARKINSON^S DISEASE
     Dosage: MD 8.7?CR 3.3?ED 0.5
     Route: 050
     Dates: start: 20170919, end: 20180305

REACTIONS (1)
  - Cognitive disorder [Unknown]
